FAERS Safety Report 11198924 (Version 2)
Quarter: 2015Q3

REPORT INFORMATION
  Report Type: Spontaneous
  Country: US (occurrence: US)
  Receive Date: 20150618
  Receipt Date: 20150703
  Transmission Date: 20151125
  Serious: Yes (Death, Hospitalization)
  Sender: FDA-Public Use
  Company Number: US-UNITED THERAPEUTICS-UNT-2015-007044

PATIENT
  Sex: Female

DRUGS (2)
  1. REMODULIN [Suspect]
     Active Substance: TREPROSTINIL
     Indication: PULMONARY ARTERIAL HYPERTENSION
     Dosage: 0.0998 ?G/KG, CONTINUING
     Route: 058
     Dates: start: 20150107, end: 20150625
  2. REMODULIN [Suspect]
     Active Substance: TREPROSTINIL
     Dosage: 0.0998 ?G/KG, CONTINUING
     Route: 058
     Dates: start: 20150121

REACTIONS (4)
  - Asthenia [Unknown]
  - Dyspnoea [Unknown]
  - Death [Fatal]
  - Blood glucose decreased [Unknown]

NARRATIVE: CASE EVENT DATE: 201506
